FAERS Safety Report 6240160-3 (Version None)
Quarter: 2009Q2

REPORT INFORMATION
  Report Type: 
  Country: None (occurrence: None)
  Receive Date: 20090623
  Receipt Date: 20090618
  Transmission Date: 20091009
  Serious: Yes (Hospitalization)
  Sender: FDA-Public Use
  Company Number: FR-JNJFOC-20090606233

PATIENT
  Age: 75 Year
  Sex: Female

DRUGS (9)
  1. OFLOCET [Suspect]
     Indication: SEPSIS
     Route: 048
  2. TRIFLUCAN [Interacting]
     Indication: FUNGAL INFECTION
     Route: 042
  3. COUMADIN [Interacting]
     Indication: DEEP VEIN THROMBOSIS
     Route: 048
  4. KARDEGIC [Concomitant]
     Indication: THROMBOSIS PROPHYLAXIS
     Route: 048
  5. LYRICA [Concomitant]
     Route: 048
  6. DOLIPRANE [Concomitant]
     Route: 065
  7. AMLODIPINE [Concomitant]
     Route: 048
  8. PARAFFIN [Concomitant]
     Indication: CONSTIPATION
     Route: 048
  9. IRBESARTAN [Concomitant]
     Indication: HYPERTENSIVE HEART DISEASE
     Route: 048

REACTIONS (2)
  - DRUG INTERACTION [None]
  - INTERNATIONAL NORMALISED RATIO INCREASED [None]
